FAERS Safety Report 16264125 (Version 2)
Quarter: 2019Q3

REPORT INFORMATION
  Report Type: Spontaneous
  Country: JP (occurrence: JP)
  Receive Date: 20190502
  Receipt Date: 20190926
  Transmission Date: 20191004
  Serious: Yes (Hospitalization, Other)
  Sender: FDA-Public Use
  Company Number: JP-BRISTOL-MYERS SQUIBB COMPANY-BMS-2019-020777

PATIENT
  Age: 66 Year
  Sex: Female
  Weight: 40 kg

DRUGS (9)
  1. LYRICA [Concomitant]
     Active Substance: PREGABALIN
     Indication: SPINAL STENOSIS
     Dosage: 75 MILLIGRAM, Q12H
     Route: 065
     Dates: start: 20181021
  2. OPALMON [Suspect]
     Active Substance: LIMAPROST
     Indication: SPINAL STENOSIS
     Dosage: 5 MICROGRAM, Q8H
     Route: 048
     Dates: start: 20181021
  3. OPDIVO [Suspect]
     Active Substance: NIVOLUMAB
     Indication: HEAD AND NECK CANCER
     Dosage: 240 MILLIGRAM, Q2WK
     Route: 041
     Dates: start: 20190104, end: 20190201
  4. JUZENTAIHOTO [ANGELICA ACUTILOBA ROOT;ASTRAGALUS SPP. ROOT;ATRACTYLODE [Concomitant]
     Active Substance: HERBALS
     Indication: MALAISE
     Dosage: 2.5 GRAM, Q8H
     Route: 048
     Dates: start: 20180518, end: 20190221
  5. MIYA-BM [Concomitant]
     Active Substance: CLOSTRIDIUM BUTYRICUM SPORES STRAIN M-55
     Indication: PRODUCT USED FOR UNKNOWN INDICATION
     Dosage: 1 GRAM
     Route: 065
     Dates: start: 20190222
  6. ETODOLAC. [Concomitant]
     Active Substance: ETODOLAC
     Indication: SPINAL STENOSIS
     Dosage: 200 MILLIGRAM, Q12H
     Route: 048
     Dates: start: 20181021, end: 20190225
  7. NEXIUM SANDOZ [Concomitant]
     Indication: GASTROOESOPHAGEAL REFLUX DISEASE
     Dosage: 20 MILLIGRAM, QD
     Route: 048
     Dates: start: 20180817
  8. MIYA-BM [Concomitant]
     Active Substance: CLOSTRIDIUM BUTYRICUM SPORES STRAIN M-55
     Indication: DIARRHOEA
     Dosage: 1 DOSAGE FORM, Q8H
     Route: 048
     Dates: start: 20180209, end: 20190221
  9. OXYCONTIN TR [Concomitant]
     Indication: CANCER PAIN
     Dosage: 5 MILLIGRAM, Q12H
     Route: 048
     Dates: start: 20190118, end: 20190131

REACTIONS (4)
  - Renal impairment [Recovered/Resolved]
  - Hepatic function abnormal [Recovered/Resolved]
  - Hyperthyroidism [Recovered/Resolved with Sequelae]
  - Hypothyroidism [Unknown]

NARRATIVE: CASE EVENT DATE: 20190215
